FAERS Safety Report 8800227 (Version 2)
Quarter: 2012Q4

REPORT INFORMATION
  Report Type: 
  Country: US (occurrence: US)
  Receive Date: 20120921
  Receipt Date: 20121031
  Transmission Date: 20130627
  Serious: Yes (Hospitalization, Other)
  Sender: FDA-Public Use
  Company Number: PHEH2012US018431

PATIENT
  Sex: Female

DRUGS (4)
  1. AREDIA [Suspect]
     Route: 042
  2. ZYPREXA [Concomitant]
     Dosage: 5 mg, QHS
  3. ZOLOFT [Concomitant]
     Dosage: 200 mg, QH
  4. AMBIEN [Concomitant]
     Dosage: 10 mg, QHS

REACTIONS (5)
  - Hallucination, auditory [Unknown]
  - Schizoaffective disorder [Unknown]
  - Head injury [Unknown]
  - Splenic granuloma [Unknown]
  - Maternal exposure during pregnancy [Unknown]
